FAERS Safety Report 5990334-1 (Version None)
Quarter: 2008Q4

REPORT INFORMATION
  Report Type: 
  Country: None (occurrence: None)
  Receive Date: 20081209
  Receipt Date: 20081128
  Transmission Date: 20090506
  Serious: Yes (Hospitalization)
  Sender: FDA-Public Use
  Company Number: GXKR2008ES11382

PATIENT
  Age: 39 Year
  Sex: Male

DRUGS (2)
  1. METHOTREXATE (NGX) (METHOTREXATE) SOLUTION FOR INFUSION [Suspect]
     Indication: ACUTE LYMPHOCYTIC LEUKAEMIA
     Dosage: 3 G/M^2, INFUSION
  2. GEMFIBROZIL [Suspect]
     Indication: ACUTE LYMPHOCYTIC LEUKAEMIA

REACTIONS (3)
  - MUCOSAL INFLAMMATION [None]
  - POTENTIATING DRUG INTERACTION [None]
  - RENAL FAILURE ACUTE [None]
